FAERS Safety Report 22303862 (Version 1)
Quarter: 2023Q2

REPORT INFORMATION
  Report Type: Spontaneous
  Country: None (occurrence: RU)
  Receive Date: 20230510
  Receipt Date: 20230510
  Transmission Date: 20230721
  Serious: Yes (Other)
  Sender: FDA-Public Use
  Company Number: RU-B.Braun Medical Inc.-2141325

PATIENT
  Age: 70 Year
  Sex: Female
  Weight: 75 kg

DRUGS (9)
  1. SODIUM CHLORIDE [Suspect]
     Active Substance: SODIUM CHLORIDE
     Indication: Product used for unknown indication
  2. CEFAZOLIN [Suspect]
     Active Substance: CEFAZOLIN
  3. OMEPRAZOLE [Concomitant]
     Active Substance: OMEPRAZOLE
  4. EPINEPHRINE [Concomitant]
     Active Substance: EPINEPHRINE
  5. PROPOFOL [Concomitant]
     Active Substance: PROPOFOL
  6. FENTANYL [Concomitant]
     Active Substance: FENTANYL
  7. SEVOFLURANE [Concomitant]
     Active Substance: SEVOFLURANE
  8. SUCCINYLCHOLINE IODIDE [Concomitant]
     Active Substance: SUCCINYLCHOLINE IODIDE
  9. RINGERS SOLUTION [Concomitant]
     Active Substance: CALCIUM CHLORIDE\POTASSIUM CHLORIDE\SODIUM CHLORIDE

REACTIONS (1)
  - Hypersensitivity [Recovered/Resolved]
